FAERS Safety Report 17211476 (Version 1)
Quarter: 2019Q4

REPORT INFORMATION
  Report Type: Spontaneous
  Country: JP (occurrence: JP)
  Receive Date: 20191229
  Receipt Date: 20191229
  Transmission Date: 20200122
  Serious: Yes (Hospitalization)
  Sender: FDA-Public Use
  Company Number: NVSJ2019JP002886

PATIENT
  Age: 52 Year
  Sex: Male

DRUGS (3)
  1. PAPAVERINE [Suspect]
     Active Substance: PAPAVERINE
     Indication: INTENTIONAL PRODUCT MISUSE
     Dosage: UNK
     Route: 065
  2. REGITIN INJECTION 10MG [Suspect]
     Active Substance: PHENTOLAMINE
     Indication: INTENTIONAL PRODUCT MISUSE
     Dosage: UNK
     Route: 065
  3. ALPROSTADIL. [Suspect]
     Active Substance: ALPROSTADIL
     Indication: INTENTIONAL PRODUCT MISUSE
     Dosage: UNK
     Route: 065

REACTIONS (1)
  - Priapism [Unknown]

NARRATIVE: CASE EVENT DATE: 201904
